FAERS Safety Report 4545982-2 (Version None)
Quarter: 2005Q1

REPORT INFORMATION
  Report Type: 
  Country: None (occurrence: None)
  Receive Date: 20050105
  Receipt Date: 20050105
  Transmission Date: 20050727
  Serious: Yes (Death)
  Sender: FDA-Public Use
  Company Number: None

PATIENT
  Sex: Female
  Weight: 57.2439 kg

DRUGS (1)
  1. CELECOXIB   100MG [Suspect]
     Indication: CHONDROCALCINOSIS PYROPHOSPHATE
     Dosage: 100MG   BID   ORAL
     Route: 048
     Dates: start: 20040217, end: 20040219

REACTIONS (1)
  - CEREBROVASCULAR ACCIDENT [None]
